FAERS Safety Report 8545396-4 (Version None)
Quarter: 2012Q3

REPORT INFORMATION
  Report Type: 
  Country: None (occurrence: None)
  Receive Date: 20120727
  Receipt Date: 20111101
  Transmission Date: 20120928
  Serious: No
  Sender: FDA-Public Use
  Company Number: US-ASTRAZENECA-2011SE66236

PATIENT
  Sex: Female

DRUGS (3)
  1. SEROQUEL [Suspect]
     Indication: DEPRESSION
     Route: 048
  2. SEROQUEL [Suspect]
     Dosage: 100 DAILY
     Route: 048
     Dates: start: 20010101
  3. PAIN MEDICATION [Concomitant]

REACTIONS (9)
  - MEMORY IMPAIRMENT [None]
  - NASOPHARYNGITIS [None]
  - MALAISE [None]
  - DELIRIUM [None]
  - OROPHARYNGEAL PAIN [None]
  - PYREXIA [None]
  - COUGH [None]
  - MUSCULAR WEAKNESS [None]
  - ACTIVITIES OF DAILY LIVING IMPAIRED [None]
